FAERS Safety Report 6293614-8 (Version None)
Quarter: 2009Q3

REPORT INFORMATION
  Report Type: 
  Country: None (occurrence: None)
  Receive Date: 20090729
  Receipt Date: 20090716
  Transmission Date: 20100115
  Serious: Yes (Death, Other)
  Sender: FDA-Public Use
  Company Number: 2009EU002822

PATIENT

DRUGS (2)
  1. TACROLIMUS [Suspect]
     Indication: LIVER TRANSPLANT
     Dosage: /D
  2. ITRACONAZOLE [Suspect]
     Indication: ANTIFUNGAL PROPHYLAXIS
     Dosage: /D

REACTIONS (3)
  - DRUG INTERACTION [None]
  - HEPATOBLASTOMA RECURRENT [None]
  - LIVER TRANSPLANT REJECTION [None]
